FAERS Safety Report 11414491 (Version 2)
Quarter: 2015Q3

REPORT INFORMATION
  Report Type: Report from Study
  Country: US (occurrence: US)
  Receive Date: 20150824
  Receipt Date: 20150904
  Transmission Date: 20151125
  Serious: Yes (Hospitalization, Other)
  Sender: FDA-Public Use
  Company Number: PHEH2015US015973

PATIENT
  Age: 50 Year
  Sex: Male

DRUGS (17)
  1. VITAMIN D3 [Concomitant]
     Active Substance: CHOLECALCIFEROL
     Indication: PRODUCT USED FOR UNKNOWN INDICATION
     Route: 065
  2. PRILOSEC [Concomitant]
     Active Substance: OMEPRAZOLE MAGNESIUM
     Indication: PRODUCT USED FOR UNKNOWN INDICATION
     Dosage: 40 MG, QD (AT 9)
     Route: 048
     Dates: start: 20150818
  3. EXTAVIA [Suspect]
     Active Substance: INTERFERON BETA-1B
     Indication: MULTIPLE SCLEROSIS
     Route: 065
  4. NEURONTIN [Concomitant]
     Active Substance: GABAPENTIN
     Indication: PRODUCT USED FOR UNKNOWN INDICATION
     Dosage: 300 MG, TID
     Route: 065
  5. AMBIEN [Concomitant]
     Active Substance: ZOLPIDEM TARTRATE
     Indication: PRODUCT USED FOR UNKNOWN INDICATION
     Dosage: 10 MG, PRN (AT BEDTIME)
     Route: 065
  6. VISTARIL [Concomitant]
     Active Substance: HYDROXYZINE PAMOATE
     Indication: PRODUCT USED FOR UNKNOWN INDICATION
     Dosage: 40 MG, PRN (TWICE A DAY)
     Route: 048
  7. NOVOLOG [Concomitant]
     Active Substance: INSULIN ASPART
     Indication: PRODUCT USED FOR UNKNOWN INDICATION
     Dosage: 36 OT,  (16 UNITS WITH REGULAR MEALS AND 20 UNITS WITH LARGE MEALS)
     Route: 065
  8. SIMETHICONE (DIMETHICONE) [Concomitant]
     Active Substance: DIMETHICONE
     Indication: PRODUCT USED FOR UNKNOWN INDICATION
     Route: 065
  9. GILENYA [Suspect]
     Active Substance: FINGOLIMOD HYDROCHLORIDE
     Indication: RELAPSING-REMITTING MULTIPLE SCLEROSIS
     Dosage: 0.5 MG, QD
     Route: 048
     Dates: start: 20150812
  10. KLONOPIN [Concomitant]
     Active Substance: CLONAZEPAM
     Indication: PRODUCT USED FOR UNKNOWN INDICATION
     Dosage: 0.5 MG, TID
     Route: 065
  11. ZYRTEC [Concomitant]
     Active Substance: CETIRIZINE HYDROCHLORIDE
     Indication: PRODUCT USED FOR UNKNOWN INDICATION
     Dosage: 10 MG, PRN (AT 9 AM)
     Route: 048
  12. BACLOFEN. [Concomitant]
     Active Substance: BACLOFEN
     Indication: PRODUCT USED FOR UNKNOWN INDICATION
     Dosage: 10 MG, TID
     Route: 065
  13. LANTUS [Concomitant]
     Active Substance: INSULIN GLARGINE
     Indication: PRODUCT USED FOR UNKNOWN INDICATION
     Dosage: 60 OT, (AT BEDTIME)
     Route: 058
     Dates: start: 20150818
  14. SOLU-MEDROL [Concomitant]
     Active Substance: METHYLPREDNISOLONE SODIUM SUCCINATE
     Dosage: 500 MG, UNK
     Route: 042
  15. TYLENOL [Concomitant]
     Active Substance: ACETAMINOPHEN
     Indication: PRODUCT USED FOR UNKNOWN INDICATION
     Dosage: 650 MG, PRN (6 HOURS)
     Route: 048
     Dates: start: 20150818
  16. SOLU-MEDROL [Concomitant]
     Active Substance: METHYLPREDNISOLONE SODIUM SUCCINATE
     Indication: PRODUCT USED FOR UNKNOWN INDICATION
     Dosage: 960 MG, PRN (EVERY 6 HOURS)
     Route: 042
  17. OMEPRAZOLE. [Concomitant]
     Active Substance: OMEPRAZOLE
     Indication: PRODUCT USED FOR UNKNOWN INDICATION
     Dosage: 40 MG, QD
     Route: 048

REACTIONS (61)
  - Muscular weakness [Unknown]
  - Facial paresis [Unknown]
  - Mood swings [Not Recovered/Not Resolved]
  - Head injury [Unknown]
  - Bronchial wall thickening [Unknown]
  - High density lipoprotein decreased [Unknown]
  - Lymphocyte count decreased [Unknown]
  - Asthenia [Unknown]
  - Musculoskeletal pain [Unknown]
  - Sensory level abnormal [Unknown]
  - Musculoskeletal stiffness [Unknown]
  - Neutrophil percentage increased [Unknown]
  - Nausea [Not Recovered/Not Resolved]
  - Multiple sclerosis relapse [Unknown]
  - Fatigue [Unknown]
  - Eye movement disorder [Unknown]
  - Body temperature increased [Unknown]
  - Intervertebral disc degeneration [Unknown]
  - Balance disorder [Unknown]
  - Gait disturbance [Unknown]
  - Tremor [Unknown]
  - Dizziness [Unknown]
  - Atrophy [Unknown]
  - Suicidal ideation [Unknown]
  - Central nervous system lesion [Unknown]
  - Arthralgia [Unknown]
  - Blood glucose increased [Unknown]
  - Hypoaesthesia [Unknown]
  - Malaise [Unknown]
  - Feeling jittery [Unknown]
  - Depressed mood [Unknown]
  - Hoffmann^s sign [Unknown]
  - Paranasal sinus discomfort [Unknown]
  - Somnolence [Not Recovered/Not Resolved]
  - Anger [Unknown]
  - Irritability [Unknown]
  - Vision blurred [Unknown]
  - Muscle spasms [Unknown]
  - Depression [Unknown]
  - Skin warm [Unknown]
  - Eosinophil percentage decreased [Unknown]
  - Altered visual depth perception [Unknown]
  - Crying [Unknown]
  - Maximal voluntary ventilation abnormal [Unknown]
  - Blood pressure decreased [Unknown]
  - Pulmonary mass [Unknown]
  - Granuloma [Unknown]
  - Blood sodium decreased [Unknown]
  - Low density lipoprotein increased [Unknown]
  - Monocyte percentage increased [Unknown]
  - Haematocrit decreased [Unknown]
  - Fear [Unknown]
  - Condition aggravated [Unknown]
  - Hyperreflexia [Unknown]
  - Tearfulness [Unknown]
  - Dry skin [Unknown]
  - Blood cholesterol increased [Unknown]
  - Blood chloride decreased [Unknown]
  - Anxiety [Unknown]
  - Tachycardia [Unknown]
  - Headache [Unknown]

NARRATIVE: CASE EVENT DATE: 20150812
